FAERS Safety Report 23433181 (Version 1)
Quarter: 2024Q1

REPORT INFORMATION
  Report Type: Spontaneous
  Country: US (occurrence: None)
  Receive Date: 20240123
  Receipt Date: 20240123
  Transmission Date: 20240410
  Serious: Yes (Hospitalization, Disabling)
  Sender: FDA-Public Use
  Company Number: None

PATIENT
  Age: 38 Year
  Sex: Female
  Weight: 144 kg

DRUGS (14)
  1. MOUNJARO [Suspect]
     Active Substance: TIRZEPATIDE
     Indication: Glucose tolerance impaired
     Dates: start: 20230301, end: 20230910
  2. OLMESARTAN [Concomitant]
     Active Substance: OLMESARTAN
  3. DULOXETINE [Concomitant]
     Active Substance: DULOXETINE
  4. PROPRANOLOL HYDROCHLORIDE [Concomitant]
     Active Substance: PROPRANOLOL HYDROCHLORIDE
  5. Colesevalem [Concomitant]
  6. CLONIDINE [Concomitant]
     Active Substance: CLONIDINE
  7. ESOMEPRAZOLE [Concomitant]
     Active Substance: ESOMEPRAZOLE
  8. FAMOTIDINE [Concomitant]
     Active Substance: FAMOTIDINE
  9. SPIRONOLACTONE [Concomitant]
     Active Substance: SPIRONOLACTONE
  10. TIZANIDINE [Concomitant]
     Active Substance: TIZANIDINE
  11. Vitamin D plus K [Concomitant]
  12. MAGNESIUM [Concomitant]
     Active Substance: MAGNESIUM
  13. VITAMIN C [Concomitant]
     Active Substance: ASCORBIC ACID
  14. VITAMIN B COMPLEX [Concomitant]
     Active Substance: CYANOCOBALAMIN\DEXPANTHENOL\NIACINAMIDE\PYRIDOXINE HYDROCHLORIDE\RIBOFLAVIN 5^-PHOSPHATE SODIUM\THIA

REACTIONS (6)
  - Pancreatitis acute [None]
  - Constipation [None]
  - Paraesthesia [None]
  - Mobility decreased [None]
  - Impaired gastric emptying [None]
  - Acute kidney injury [None]

NARRATIVE: CASE EVENT DATE: 20230910
